FAERS Safety Report 13865257 (Version 2)
Quarter: 2017Q4

REPORT INFORMATION
  Report Type: Report from Study
  Country: US (occurrence: US)
  Receive Date: 20170814
  Receipt Date: 20171030
  Transmission Date: 20180320
  Serious: Yes (Death, Other)
  Sender: FDA-Public Use
  Company Number: US-BAYER-2017-148771

PATIENT
  Age: 59 Year
  Sex: Male

DRUGS (1)
  1. STIVARGA [Suspect]
     Active Substance: REGORAFENIB
     Indication: RECTOSIGMOID CANCER
     Dosage: DAILY DOSE 160 MG
     Route: 048

REACTIONS (7)
  - Onychomycosis [Not Recovered/Not Resolved]
  - Death [Fatal]
  - Pain in extremity [None]
  - Nail disorder [Not Recovered/Not Resolved]
  - Peripheral swelling [None]
  - Nephrostomy [None]
  - Rectosigmoid cancer [None]

NARRATIVE: CASE EVENT DATE: 20170826
